FAERS Safety Report 23242218 (Version 1)
Quarter: 2023Q4

REPORT INFORMATION
  Report Type: Spontaneous
  Country: TW (occurrence: TW)
  Receive Date: 20231129
  Receipt Date: 20231129
  Transmission Date: 20240110
  Serious: Yes (Hospitalization, Other)
  Sender: FDA-Public Use
  Company Number: TW-MYLANLABS-2023M1125412

PATIENT
  Age: 36 Year
  Sex: Female

DRUGS (4)
  1. DOXORUBICIN [Suspect]
     Active Substance: DOXORUBICIN
     Indication: Inflammatory myofibroblastic tumour
     Dosage: UNK, CYCLE; FIVE CYCLES OF STANDARD FIRST-LINE SYSTEMIC CHEMOTHERAPY
     Route: 065
  2. DOXORUBICIN [Suspect]
     Active Substance: DOXORUBICIN
     Indication: Metastases to lung
  3. IFOSFAMIDE [Suspect]
     Active Substance: IFOSFAMIDE
     Indication: Inflammatory myofibroblastic tumour
     Dosage: UNK UNK, CYCLE; FIVE CYCLES OF STANDARD FIRST-LINE SYSTEMIC CHEMOTHERAPY
     Route: 065
  4. IFOSFAMIDE [Suspect]
     Active Substance: IFOSFAMIDE
     Indication: Metastases to lung

REACTIONS (2)
  - Anaemia [Unknown]
  - Treatment failure [Unknown]
